FAERS Safety Report 4341069-2 (Version None)
Quarter: 2004Q2

REPORT INFORMATION
  Report Type: 
  Country: None (occurrence: None)
  Receive Date: 20040413
  Receipt Date: 20040405
  Transmission Date: 20050107
  Serious: Yes (Death)
  Sender: FDA-Public Use
  Company Number: US-JNJFOC-20040401077

PATIENT
  Age: 69 Year
  Sex: Male

DRUGS (1)
  1. DURAGESIC [Suspect]
     Indication: CANCER PAIN
     Dosage: 125 UG/HR, 1 IN 72 HOUR, TRANSDERMAL
     Route: 062
     Dates: start: 20031001, end: 20040113

REACTIONS (2)
  - MALIGNANT NEOPLASM OF RENAL PELVIS [None]
  - MALIGNANT NEOPLASM PROGRESSION [None]
